FAERS Safety Report 15637049 (Version 1)
Quarter: 2018Q4

REPORT INFORMATION
  Report Type: Spontaneous
  Country: BR (occurrence: BR)
  Receive Date: 20181120
  Receipt Date: 20181120
  Transmission Date: 20190205
  Serious: Yes (Other)
  Sender: FDA-Public Use
  Company Number: BR-ASTRAZENECA-2018SF49723

PATIENT

DRUGS (2)
  1. INSULIN [Concomitant]
     Active Substance: INSULIN NOS
  2. DAPAGLIFLOZIN. [Suspect]
     Active Substance: DAPAGLIFLOZIN
     Indication: DIABETES MELLITUS
     Route: 048

REACTIONS (4)
  - Hypoglycaemia [Unknown]
  - Metabolic acidosis [Unknown]
  - Ketoacidosis [Recovered/Resolved]
  - Latent autoimmune diabetes in adults [Unknown]

NARRATIVE: CASE EVENT DATE: 2017
